FAERS Safety Report 4467340-1 (Version None)
Quarter: 2004Q4

REPORT INFORMATION
  Report Type: 
  Country: None (occurrence: None)
  Receive Date: 20041006
  Receipt Date: 20040928
  Transmission Date: 20050328
  Serious: Yes (Death)
  Sender: FDA-Public Use
  Company Number: AR-JNJFOC-20040910138

PATIENT
  Age: 76 Year
  Sex: Male

DRUGS (2)
  1. HALDOL [Suspect]
     Route: 065
  2. LORAZEPAM [Concomitant]

REACTIONS (1)
  - MORBID THOUGHTS [None]
